FAERS Safety Report 4896411-0 (Version None)
Quarter: 2006Q1

REPORT INFORMATION
  Report Type: 
  Country: None (occurrence: None)
  Receive Date: 20060131
  Receipt Date: 20051212
  Transmission Date: 20060701
  Serious: Yes (Other)
  Sender: FDA-Public Use
  Company Number: 2005AC01950

PATIENT
  Age: 66 Year
  Sex: Male

DRUGS (6)
  1. BICALUTAMIDE [Suspect]
     Indication: PROSTATE CANCER
     Dates: start: 19960901
  2. BICALUTAMIDE [Suspect]
     Indication: METASTASES TO BONE
     Dates: start: 19960901
  3. LEUPROLIDE [Suspect]
     Indication: PROSTATE CANCER
     Dates: start: 19960201
  4. LEUPROLIDE [Suspect]
     Indication: METASTASES TO BONE
     Dates: start: 19960201
  5. GLUCOTROL XL [Concomitant]
     Indication: DIABETES MELLITUS
     Route: 048
     Dates: start: 19960601
  6. GLUCOTROL XL [Concomitant]
     Route: 048
     Dates: start: 19960601

REACTIONS (4)
  - DIABETES MELLITUS [None]
  - HYPERGLYCAEMIA [None]
  - INSULIN RESISTANCE [None]
  - WEIGHT INCREASED [None]
